FAERS Safety Report 5679357-X (Version None)
Quarter: 2008Q1

REPORT INFORMATION
  Report Type: 
  Country: None (occurrence: None)
  Receive Date: 20080325
  Receipt Date: 20080314
  Transmission Date: 20080703
  Serious: Yes (Hospitalization, Other)
  Sender: FDA-Public Use
  Company Number: JP-ROCHE-544354

PATIENT
  Age: 66 Year
  Sex: Male
  Weight: 53 kg

DRUGS (4)
  1. PEGASYS [Suspect]
     Route: 058
     Dates: start: 20071105
  2. COPEGUS [Suspect]
     Route: 048
     Dates: start: 20071105
  3. LOXONIN [Concomitant]
     Route: 048
     Dates: start: 20071105
  4. MUCOSTA [Concomitant]
     Dosage: TAKEN AS NEEDED
     Route: 048
     Dates: start: 20071105

REACTIONS (6)
  - DIZZINESS [None]
  - HEART RATE DECREASED [None]
  - HYPOTENSION [None]
  - LOSS OF CONSCIOUSNESS [None]
  - MALAISE [None]
  - SKIN LACERATION [None]
